FAERS Safety Report 12338004 (Version 1)
Quarter: 2016Q2

REPORT INFORMATION
  Report Type: Spontaneous
  Country: DK (occurrence: DK)
  Receive Date: 20160505
  Receipt Date: 20160505
  Transmission Date: 20160815
  Serious: Yes (Hospitalization, Disabling)
  Sender: FDA-Public Use
  Company Number: DK-JNJFOC-20160425167

PATIENT
  Age: 30 Year
  Sex: Male

DRUGS (3)
  1. RISPERDAL CONSTA [Suspect]
     Active Substance: RISPERIDONE
     Indication: BORDERLINE PERSONALITY DISORDER
     Route: 030
     Dates: start: 20100906
  2. RISPERDAL CONSTA [Suspect]
     Active Substance: RISPERIDONE
     Indication: BORDERLINE PERSONALITY DISORDER
     Route: 030
     Dates: start: 2011, end: 20130624
  3. RISPERDAL [Suspect]
     Active Substance: RISPERIDONE
     Indication: BORDERLINE PERSONALITY DISORDER
     Route: 048
     Dates: start: 2008, end: 20080819

REACTIONS (16)
  - Tardive dyskinesia [Unknown]
  - Sleep disorder [Unknown]
  - Dysphonia [Unknown]
  - Walking disability [Unknown]
  - Wheelchair user [Unknown]
  - Torticollis [Unknown]
  - Dizziness [Unknown]
  - Dystonic tremor [Unknown]
  - Headache [Unknown]
  - Arthralgia [Unknown]
  - Dystonia [Unknown]
  - Back pain [Unknown]
  - Treatment noncompliance [Unknown]
  - Sensory disturbance [Unknown]
  - Muscle spasms [Unknown]
  - Neck pain [Unknown]

NARRATIVE: CASE EVENT DATE: 201306
